FAERS Safety Report 5283728-3 (Version None)
Quarter: 2007Q2

REPORT INFORMATION
  Report Type: 
  Country: None (occurrence: None)
  Receive Date: 20070402
  Receipt Date: 20070323
  Transmission Date: 20071010
  Serious: Yes (Hospitalization, Other)
  Sender: FDA-Public Use
  Company Number: US-PURDUE-USA_2006_0025759

PATIENT
  Age: 56 Year
  Sex: Female
  Weight: 66 kg

DRUGS (15)
  1. OXYCONTIN [Suspect]
     Indication: PAIN
     Dosage: 160 MG, DAILY
     Route: 048
     Dates: start: 20040101
  2. SYNTHROID [Concomitant]
     Dates: start: 19940101
  3. COMBIVENT [Concomitant]
     Dates: start: 20060620
  4. AZITHROMAX [Concomitant]
     Indication: PNEUMONIA
     Dates: start: 20060619
  5. SEROQUEL [Concomitant]
     Dates: start: 20050401
  6. ASPIRIN [Concomitant]
     Dates: start: 19970101
  7. ALBUTEROL [Concomitant]
     Dates: start: 19980101
  8. NEXIUM [Concomitant]
     Dosage: UNK, UNK
     Dates: start: 20000101
  9. LORTAB [Suspect]
     Indication: DRUG USE FOR UNKNOWN INDICATION
     Dosage: 5 MG, UNK
     Dates: start: 20050829
  10. ACETAMINOPHEN [Suspect]
     Indication: DRUG USE FOR UNKNOWN INDICATION
  11. FLEXERIL [Suspect]
     Indication: DRUG USE FOR UNKNOWN INDICATION
  12. LEXAPRO [Suspect]
     Indication: DEPRESSION
     Dosage: 10 UNK, UNK
     Route: 048
     Dates: start: 20051028
  13. FENTANYL CITRATE [Suspect]
     Indication: BREAKTHROUGH PAIN
     Dosage: 600 MCG, PRN
     Route: 002
     Dates: start: 20050923, end: 20060619
  14. FENTANYL CITRATE [Suspect]
     Dosage: 400 MCG, PRN
     Route: 002
     Dates: start: 20060620, end: 20060720
  15. LYRICA [Concomitant]
     Dates: start: 20060314

REACTIONS (21)
  - AMNESIA [None]
  - BLOOD GASES ABNORMAL [None]
  - BREAKTHROUGH PAIN [None]
  - COGNITIVE DISORDER [None]
  - DELIRIUM [None]
  - DELUSION [None]
  - DRUG TOLERANCE [None]
  - HALLUCINATION [None]
  - LETHARGY [None]
  - MENTAL STATUS CHANGES [None]
  - MULTIPLE DRUG OVERDOSE [None]
  - OXYGEN SATURATION DECREASED [None]
  - PCO2 DECREASED [None]
  - PERICARDIAL EFFUSION [None]
  - PERICARDITIS [None]
  - PLEURAL EFFUSION [None]
  - PNEUMONIA [None]
  - PO2 DECREASED [None]
  - PYREXIA [None]
  - TACHYCARDIA [None]
  - WHITE BLOOD CELL COUNT INCREASED [None]
